FAERS Safety Report 6279427-1 (Version None)
Quarter: 2009Q3

REPORT INFORMATION
  Report Type: 
  Country: None (occurrence: None)
  Receive Date: 20090721
  Receipt Date: 20090605
  Transmission Date: 20100115
  Serious: Yes (Life-Threatening)
  Sender: FDA-Public Use
  Company Number: 1-19177105

PATIENT
  Age: 35 Year
  Sex: Female

DRUGS (4)
  1. FENTANYL [Suspect]
     Indication: ANAESTHESIA
     Dosage: 0.15 MG, INTRAVENOUS
     Route: 042
     Dates: start: 20090519, end: 20090519
  2. CURACIT (SUXAMENTHONIUM CHLORIDE) [Suspect]
     Indication: ANAESTHESIA
     Dosage: 100 MG, INTRAVENOUS
     Route: 042
     Dates: start: 20090519, end: 20090519
  3. THIOPENTAL SODIUM [Suspect]
     Indication: ANAESTHESIA
     Dosage: 500 MG, INTRAVENOUS
     Route: 042
     Dates: start: 20090519, end: 20090519
  4. LEVAXIN (LEVOTHYROXINE) [Concomitant]

REACTIONS (3)
  - ATELECTASIS [None]
  - OXYGEN SATURATION DECREASED [None]
  - WHEEZING [None]
